FAERS Safety Report 17416674 (Version 1)
Quarter: 2020Q1

REPORT INFORMATION
  Report Type: Spontaneous
  Country: US (occurrence: US)
  Receive Date: 20200214
  Receipt Date: 20200214
  Transmission Date: 20200409
  Serious: Yes (Hospitalization, Other)
  Sender: FDA-Public Use
  Company Number: US-GLAXOSMITHKLINE-US2019GSK159485

PATIENT

DRUGS (4)
  1. CEFTRIAXONE. [Suspect]
     Active Substance: CEFTRIAXONE
     Indication: CELLULITIS
     Dosage: 1 G, UNK
     Route: 030
  2. MUPIROCIN. [Suspect]
     Active Substance: MUPIROCIN
     Indication: CELLULITIS
     Dosage: UNK
     Route: 061
  3. CEPHALEXIN. [Suspect]
     Active Substance: CEPHALEXIN
     Indication: CELLULITIS
     Dosage: UNK
  4. TRIMETHOPRIM + SULFAMETHOXAZOL [Suspect]
     Active Substance: SULFAMERAZINE SODIUM\TRIMETHOPRIM
     Indication: CELLULITIS
     Dosage: UNK

REACTIONS (9)
  - Skin oedema [Unknown]
  - Erythema [Unknown]
  - Eczema [Unknown]
  - Drug ineffective [Unknown]
  - Acute generalised exanthematous pustulosis [Unknown]
  - Skin lesion [Unknown]
  - Eosinophilia [Unknown]
  - Papule [Unknown]
  - Pustule [Recovered/Resolved]
